FAERS Safety Report 9947921 (Version 2)
Quarter: 2014Q1

REPORT INFORMATION
  Report Type: Spontaneous
  Country: PR (occurrence: PR)
  Receive Date: 20140303
  Receipt Date: 20140303
  Transmission Date: 20141002
  Serious: No
  Sender: FDA-Public Use
  Company Number: PR-ABBVIE-13P-131-1032231-00

PATIENT
  Age: 35 Year
  Sex: Female
  Weight: 41.31 kg

DRUGS (2)
  1. HUMIRA [Suspect]
     Indication: CROHN^S DISEASE
     Route: 058
     Dates: start: 20120905, end: 20121230
  2. HUMIRA [Suspect]
     Route: 058
     Dates: start: 20120102

REACTIONS (1)
  - Nasopharyngitis [Recovered/Resolved]
